APPROVED DRUG PRODUCT: VELOSEF '250'
Active Ingredient: CEPHRADINE
Strength: 250MG
Dosage Form/Route: CAPSULE;ORAL
Application: N050548 | Product #001
Applicant: ERSANA INC SUB ER SQUIBB AND SONS
Approved: Approved Prior to Jan 1, 1982 | RLD: No | RS: No | Type: DISCN